FAERS Safety Report 6184496-3 (Version None)
Quarter: 2009Q2

REPORT INFORMATION
  Report Type: 
  Country: None (occurrence: None)
  Receive Date: 20090508
  Receipt Date: 20090430
  Transmission Date: 20091009
  Serious: Yes (Hospitalization)
  Sender: FDA-Public Use
  Company Number: RS-NOVOPROD-286766

PATIENT
  Sex: Male
  Weight: 37 kg

DRUGS (6)
  1. NOVORAPID [Suspect]
     Indication: TYPE 1 DIABETES MELLITUS
     Dosage: 12+14+10 IU
     Route: 064
     Dates: start: 20071101
  2. LEVEMIR [Suspect]
     Indication: TYPE 1 DIABETES MELLITUS
     Dosage: 30 IU, QD
     Route: 064
     Dates: start: 20071101
  3. LEVEMIR [Suspect]
  4. DABROSTON [Concomitant]
     Route: 064
  5. JUGOCILLIN [Concomitant]
     Route: 064
  6. LONGACEPH                          /00672201/ [Concomitant]
     Route: 064

REACTIONS (8)
  - ASPIRATION [None]
  - DRUG EXPOSURE DURING PREGNANCY [None]
  - ENCEPHALOPATHY NEONATAL [None]
  - HYPERBILIRUBINAEMIA NEONATAL [None]
  - HYPERTROPHY [None]
  - HYPOGLYCAEMIA NEONATAL [None]
  - INFECTION [None]
  - NEONATAL DISORDER [None]
